FAERS Safety Report 25893947 (Version 2)
Quarter: 2025Q4

REPORT INFORMATION
  Report Type: Spontaneous
  Country: US (occurrence: US)
  Receive Date: 20251008
  Receipt Date: 20251022
  Transmission Date: 20260118
  Serious: No
  Sender: BAUSCH AND LOMB
  Company Number: US-BAUSCH-BH-2025-018236

PATIENT
  Age: 85 Year
  Sex: Female

DRUGS (1)
  1. IPRATROPIUM BROMIDE [Suspect]
     Active Substance: IPRATROPIUM BROMIDE
     Indication: Rhinorrhoea
     Dosage: 2 SPRAYS IN TWO NOSTRILS TWICE A DAY
     Route: 045

REACTIONS (5)
  - Rhinorrhoea [Unknown]
  - Symptom recurrence [Unknown]
  - Product delivery mechanism issue [Unknown]
  - Therapy interrupted [Unknown]
  - Product packaging quantity issue [Unknown]
